FAERS Safety Report 8847278 (Version 1)
Quarter: 2012Q4

REPORT INFORMATION
  Report Type: 
  Country: NZ (occurrence: NZ)
  Receive Date: 20121018
  Receipt Date: 20121018
  Transmission Date: 20130627
  Serious: Yes (Congenital Anomaly)
  Sender: FDA-Public Use
  Company Number: NZ-PFIZER INC-2012256323

PATIENT
  Sex: Male
  Weight: 2.01 kg

DRUGS (2)
  1. QUINAPRIL HCL [Suspect]
     Dosage: UNK
     Route: 064
  2. NITROFURANTOIN [Suspect]
     Indication: URINARY TRACT INFECTION
     Dosage: UNK
     Route: 064

REACTIONS (9)
  - Angiotensin converting enzyme inhibitor foetopathy [Unknown]
  - Maternal exposure timing unspecified [Unknown]
  - Respiratory distress [Unknown]
  - Foetal growth restriction [Unknown]
  - Pneumomediastinum [Recovered/Resolved]
  - Pneumothorax [Recovered/Resolved]
  - Head deformity [Unknown]
  - Renal dysplasia [Unknown]
  - Cyst [Unknown]
